FAERS Safety Report 13396806 (Version 3)
Quarter: 2017Q2

REPORT INFORMATION
  Report Type: Spontaneous
  Country: US (occurrence: US)
  Receive Date: 20170403
  Receipt Date: 20170522
  Transmission Date: 20170830
  Serious: Yes (Hospitalization)
  Sender: FDA-Public Use
  Company Number: US-B.I. PHARMACEUTICALS,INC./RIDGEFIELD-2017-BI-017676

PATIENT
  Age: 63 Year
  Sex: Female
  Weight: 81.65 kg

DRUGS (8)
  1. SPIRIVA [Suspect]
     Active Substance: TIOTROPIUM BROMIDE MONOHYDRATE
     Indication: CHRONIC OBSTRUCTIVE PULMONARY DISEASE
     Dosage: UNIT DOSE: 2 INHALATIONS
     Route: 055
     Dates: end: 2016
  2. SPIRIVA [Suspect]
     Active Substance: TIOTROPIUM BROMIDE MONOHYDRATE
     Indication: CHRONIC OBSTRUCTIVE PULMONARY DISEASE
     Route: 055
     Dates: start: 2010, end: 2016
  3. METFORMIN [Concomitant]
     Active Substance: METFORMIN HYDROCHLORIDE
     Indication: DIABETES MELLITUS
     Route: 048
  4. VERAPIMAL [Concomitant]
     Indication: HYPERTENSION
     Route: 048
  5. ESOMEPROZOLE [Concomitant]
     Active Substance: ESOMEPRAZOLE
     Indication: GASTROOESOPHAGEAL REFLUX DISEASE
     Route: 048
  6. LISINOPRIL. [Concomitant]
     Active Substance: LISINOPRIL
     Indication: HYPERTENSION
     Route: 048
  7. LOVASTATIN. [Concomitant]
     Active Substance: LOVASTATIN
     Indication: BLOOD CHOLESTEROL INCREASED
     Route: 048
  8. ADVAIR HFA [Concomitant]
     Active Substance: FLUTICASONE PROPIONATE\SALMETEROL XINAFOATE
     Indication: CHRONIC OBSTRUCTIVE PULMONARY DISEASE
     Dosage: FORM STRENGTH AND UNIT DOSE: 52-50MCG
     Route: 055

REACTIONS (9)
  - Seborrhoeic dermatitis [Unknown]
  - Chronic obstructive pulmonary disease [Recovered/Resolved]
  - Viral upper respiratory tract infection [Not Recovered/Not Resolved]
  - Influenza [Recovered/Resolved]
  - Bacterial infection [Recovered/Resolved]
  - Mucosal discolouration [Not Recovered/Not Resolved]
  - Dyspnoea [Not Recovered/Not Resolved]
  - Loss of personal independence in daily activities [Not Recovered/Not Resolved]
  - Pneumonia [Recovered/Resolved]

NARRATIVE: CASE EVENT DATE: 2014
